FAERS Safety Report 6026205-4 (Version None)
Quarter: 2008Q4

REPORT INFORMATION
  Report Type: 
  Country: None (occurrence: None)
  Receive Date: 20081230
  Receipt Date: 20081215
  Transmission Date: 20090506
  Serious: Yes (Life-Threatening, Hospitalization)
  Sender: FDA-Public Use
  Company Number: 2008S1017906

PATIENT
  Age: 59 Year
  Sex: Female

DRUGS (13)
  1. GLIMEPIRIDE [Suspect]
     Indication: MEDICATION ERROR
     Dosage: 1 MG; 3 TIMES A DAY; ORAL
     Route: 048
     Dates: start: 20080801, end: 20081001
  2. AVLOCARDYL (PROPRANOLOL) (40 MG) [Suspect]
     Dosage: 5 DF; AS NEEDED; ORAL
     Route: 048
     Dates: start: 20081001, end: 20081002
  3. ISOCARD /00586302/ (ISOSORBIDE DINITRATE) [Suspect]
     Dates: start: 20081001, end: 20081002
  4. ALPRAZOLAM MERCK [Concomitant]
  5. FLECAINE [Concomitant]
  6. KARDEGIC [Concomitant]
  7. VALSARTAN [Concomitant]
  8. XANAX [Concomitant]
  9. SEROPLEX [Concomitant]
  10. STILNOX [Concomitant]
  11. CERIS [Concomitant]
  12. MEPRONIZINE [Concomitant]
  13. DOLIPRANE [Concomitant]

REACTIONS (5)
  - ASTHENIA [None]
  - BRADYCARDIA [None]
  - HYPOGLYCAEMIC COMA [None]
  - PALPITATIONS [None]
  - VERTIGO [None]
